FAERS Safety Report 9158671 (Version 1)
Quarter: 2013Q1

REPORT INFORMATION
  Report Type: Spontaneous
  Country: US (occurrence: US)
  Receive Date: 20130312
  Receipt Date: 20130312
  Transmission Date: 20140127
  Serious: No
  Sender: FDA-Public Use
  Company Number: US-PFIZER INC-2013081377

PATIENT
  Age: 53 Year
  Sex: Female
  Weight: 56 kg

DRUGS (3)
  1. LYRICA [Suspect]
     Indication: FIBROMYALGIA
     Dosage: 75 MG, 2X/DAY
     Route: 048
     Dates: start: 2008
  2. LYRICA [Suspect]
     Dosage: 50 MG, 3X/DAY
     Route: 048
  3. LYRICA [Suspect]
     Dosage: 50 MG, 2X/DAY
     Route: 048

REACTIONS (9)
  - Withdrawal syndrome [Unknown]
  - Discomfort [Unknown]
  - Pain [Unknown]
  - Paraesthesia [Unknown]
  - Insomnia [Unknown]
  - Dyskinesia [Unknown]
  - Injury [Unknown]
  - Fall [Unknown]
  - Weight decreased [Unknown]
